FAERS Safety Report 5165871-2 (Version None)
Quarter: 2006Q4

REPORT INFORMATION
  Report Type: 
  Country: None (occurrence: None)
  Receive Date: 20061128
  Receipt Date: 20061113
  Transmission Date: 20070319
  Serious: Yes (Other)
  Sender: FDA-Public Use
  Company Number: TNZFR200600125

PATIENT
  Age: 32 Year
  Sex: Female
  Weight: 72 kg

DRUGS (2)
  1. INNOHEP [Suspect]
     Indication: THROMBOSIS PROPHYLAXIS
     Dosage: SEE IMAGE
     Route: 058
     Dates: start: 20060509
  2. ASPIRIN [Concomitant]

REACTIONS (6)
  - BLEEDING PERIPARTUM [None]
  - CAESAREAN SECTION [None]
  - DRUG EXPOSURE DURING PREGNANCY [None]
  - PLACENTA ACCRETA [None]
  - PRE-ECLAMPSIA [None]
  - THROMBOCYTOPENIA [None]
